FAERS Safety Report 17530620 (Version 4)
Quarter: 2023Q4

REPORT INFORMATION
  Report Type: Spontaneous
  Country: CA (occurrence: CA)
  Receive Date: 20200312
  Receipt Date: 20231117
  Transmission Date: 20240110
  Serious: Yes (Life-Threatening, Hospitalization, Disabling, Other)
  Sender: FDA-Public Use
  Company Number: CA-BRISTOL-MYERS SQUIBB COMPANY-BMS-2020-021584

PATIENT
  Age: 44 Year
  Sex: Female
  Weight: 68 kg

DRUGS (321)
  1. ORENCIA [Suspect]
     Active Substance: ABATACEPT
     Indication: Rheumatoid arthritis
     Route: 042
  2. ORENCIA [Suspect]
     Active Substance: ABATACEPT
     Indication: Psoriatic arthropathy
     Route: 042
  3. ORENCIA [Suspect]
     Active Substance: ABATACEPT
     Route: 042
  4. ACTEMRA [Concomitant]
     Active Substance: TOCILIZUMAB
     Indication: Rheumatoid arthritis
  5. ACTEMRA [Concomitant]
     Active Substance: TOCILIZUMAB
     Route: 042
  6. ACTEMRA [Concomitant]
     Active Substance: TOCILIZUMAB
     Route: 058
  7. ACTEMRA [Concomitant]
     Active Substance: TOCILIZUMAB
  8. ACTEMRA [Concomitant]
     Active Substance: TOCILIZUMAB
     Route: 042
  9. ACTEMRA [Concomitant]
     Active Substance: TOCILIZUMAB
     Route: 048
  10. ACTEMRA [Concomitant]
     Active Substance: TOCILIZUMAB
     Route: 042
  11. ACTEMRA [Concomitant]
     Active Substance: TOCILIZUMAB
     Route: 016
  12. ACTEMRA [Concomitant]
     Active Substance: TOCILIZUMAB
  13. ORENCIA [Suspect]
     Active Substance: ABATACEPT
     Indication: Rheumatoid arthritis
  14. ORENCIA [Suspect]
     Active Substance: ABATACEPT
     Indication: Psoriatic arthropathy
     Dosage: FREQUENCY: EVERY DAY
     Route: 017
  15. ARAVA [Concomitant]
     Active Substance: LEFLUNOMIDE
     Indication: Rheumatoid arthritis
  16. ARAVA [Concomitant]
     Active Substance: LEFLUNOMIDE
     Route: 019
  17. ARAVA [Concomitant]
     Active Substance: LEFLUNOMIDE
     Route: 048
  18. ARAVA [Concomitant]
     Active Substance: LEFLUNOMIDE
     Route: 048
  19. ARAVA [Concomitant]
     Active Substance: LEFLUNOMIDE
     Route: 005
  20. ARAVA [Concomitant]
     Active Substance: LEFLUNOMIDE
  21. ORENCIA [Suspect]
     Active Substance: ABATACEPT
     Indication: Rheumatoid arthritis
     Route: 058
  22. ORENCIA [Suspect]
     Active Substance: ABATACEPT
     Indication: Psoriatic arthropathy
     Route: 058
  23. CETIRIZINE HYDROCHLORIDE [Concomitant]
     Active Substance: CETIRIZINE HYDROCHLORIDE
     Indication: Product used for unknown indication
  24. ACETAMINOPHEN [Concomitant]
     Active Substance: ACETAMINOPHEN
     Indication: Rheumatoid arthritis
  25. ACETAMINOPHEN [Concomitant]
     Active Substance: ACETAMINOPHEN
     Indication: Pain
  26. ACETAMINOPHEN [Concomitant]
     Active Substance: ACETAMINOPHEN
     Indication: Pyrexia
  27. CIMZIA [Concomitant]
     Active Substance: CERTOLIZUMAB PEGOL
     Indication: Rheumatoid arthritis
     Route: 058
  28. CIMZIA [Concomitant]
     Active Substance: CERTOLIZUMAB PEGOL
     Indication: Psoriatic arthropathy
     Route: 058
  29. CIMZIA [Concomitant]
     Active Substance: CERTOLIZUMAB PEGOL
     Indication: Psoriasis
     Route: 058
  30. CIMZIA [Concomitant]
     Active Substance: CERTOLIZUMAB PEGOL
  31. CIMZIA [Concomitant]
     Active Substance: CERTOLIZUMAB PEGOL
     Route: 005
  32. CIMZIA [Concomitant]
     Active Substance: CERTOLIZUMAB PEGOL
     Route: 058
  33. CIMZIA [Concomitant]
     Active Substance: CERTOLIZUMAB PEGOL
     Route: 058
  34. ACETAMINOPHEN AND CODEINE [Concomitant]
     Active Substance: ACETAMINOPHEN\CODEINE PHOSPHATE
     Indication: Product used for unknown indication
  35. ENBREL [Concomitant]
     Active Substance: ETANERCEPT
     Indication: Rheumatoid arthritis
     Route: 058
  36. ENBREL [Concomitant]
     Active Substance: ETANERCEPT
     Indication: Psoriatic arthropathy
     Route: 058
  37. ENBREL [Concomitant]
     Active Substance: ETANERCEPT
  38. ENBREL [Concomitant]
     Active Substance: ETANERCEPT
     Route: 058
  39. ENBREL [Concomitant]
     Active Substance: ETANERCEPT
  40. FOLIC ACID [Concomitant]
     Active Substance: FOLIC ACID
     Indication: Product used for unknown indication
  41. FOLIC ACID [Concomitant]
     Active Substance: FOLIC ACID
     Indication: Rheumatoid arthritis
     Route: 016
  42. FOLIC ACID [Concomitant]
     Active Substance: FOLIC ACID
  43. FOLIC ACID [Concomitant]
     Active Substance: FOLIC ACID
  44. FOLIC ACID [Concomitant]
     Active Substance: FOLIC ACID
     Route: 058
  45. FOLIC ACID [Concomitant]
     Active Substance: FOLIC ACID
  46. FOLIC ACID [Concomitant]
     Active Substance: FOLIC ACID
     Route: 048
  47. FOLIC ACID [Concomitant]
     Active Substance: FOLIC ACID
     Route: 048
  48. FOLIC ACID [Concomitant]
     Active Substance: FOLIC ACID
  49. FOLIC ACID [Concomitant]
     Active Substance: FOLIC ACID
  50. FOLIC ACID [Concomitant]
     Active Substance: FOLIC ACID
     Route: 048
  51. FOLIC ACID [Concomitant]
     Active Substance: FOLIC ACID
  52. ADALIMUMAB [Concomitant]
     Active Substance: ADALIMUMAB\ISOPROPYL ALCOHOL
     Indication: Rheumatoid arthritis
     Dosage: SOLUTION SUBCUTANEOUS
     Route: 058
  53. FOSAMAX [Concomitant]
     Active Substance: ALENDRONATE SODIUM
     Indication: Rheumatoid arthritis
  54. FOSAMAX [Concomitant]
     Active Substance: ALENDRONATE SODIUM
     Route: 048
  55. FOSAMAX [Concomitant]
     Active Substance: ALENDRONATE SODIUM
     Route: 016
  56. FOSAMAX [Concomitant]
     Active Substance: ALENDRONATE SODIUM
     Route: 058
  57. FOSAMAX [Concomitant]
     Active Substance: ALENDRONATE SODIUM
     Route: 048
  58. FOSAMAX [Concomitant]
     Active Substance: ALENDRONATE SODIUM
     Route: 048
  59. FOSAMAX [Concomitant]
     Active Substance: ALENDRONATE SODIUM
  60. FOSAMAX [Concomitant]
     Active Substance: ALENDRONATE SODIUM
     Route: 005
  61. FOSAMAX [Concomitant]
     Active Substance: ALENDRONATE SODIUM
  62. FOSAMAX [Concomitant]
     Active Substance: ALENDRONATE SODIUM
     Route: 048
  63. FOSAMAX [Concomitant]
     Active Substance: ALENDRONATE SODIUM
     Route: 005
  64. FOSAMAX [Concomitant]
     Active Substance: ALENDRONATE SODIUM
     Route: 048
  65. ALENDRONIC ACID [Concomitant]
     Active Substance: ALENDRONIC ACID
     Indication: Rheumatoid arthritis
     Route: 016
  66. HUMIRA [Concomitant]
     Active Substance: ADALIMUMAB
     Indication: Rheumatoid arthritis
     Route: 058
  67. HUMIRA [Concomitant]
     Active Substance: ADALIMUMAB
     Indication: Psoriatic arthropathy
     Route: 058
  68. HUMIRA [Concomitant]
     Active Substance: ADALIMUMAB
  69. HUMIRA [Concomitant]
     Active Substance: ADALIMUMAB
     Route: 058
  70. HUMIRA [Concomitant]
     Active Substance: ADALIMUMAB
     Route: 058
  71. HUMIRA [Concomitant]
     Active Substance: ADALIMUMAB
     Route: 058
  72. DICLOFENAC SODIUM [Concomitant]
     Active Substance: DICLOFENAC\DICLOFENAC SODIUM
     Indication: Product used for unknown indication
  73. HYDROXYCHLOROQUINE [Concomitant]
     Active Substance: HYDROXYCHLOROQUINE
     Indication: Rheumatoid arthritis
  74. HYDROXYCHLOROQUINE [Concomitant]
     Active Substance: HYDROXYCHLOROQUINE
     Route: 005
  75. HYDROXYCHLOROQUINE [Concomitant]
     Active Substance: HYDROXYCHLOROQUINE
  76. HYDROXYCHLOROQUINE SULFATE [Concomitant]
     Active Substance: HYDROXYCHLOROQUINE SULFATE
     Indication: Rheumatoid arthritis
  77. HYDROXYCHLOROQUINE SULFATE [Concomitant]
     Active Substance: HYDROXYCHLOROQUINE SULFATE
     Indication: Rheumatoid arthritis
  78. HYDROXYCHLOROQUINE SULFATE [Concomitant]
     Active Substance: HYDROXYCHLOROQUINE SULFATE
     Indication: Systemic lupus erythematosus
  79. HYDROXYCHLOROQUINE SULFATE [Concomitant]
     Active Substance: HYDROXYCHLOROQUINE SULFATE
     Route: 058
  80. HYDROXYCHLOROQUINE SULFATE [Concomitant]
     Active Substance: HYDROXYCHLOROQUINE SULFATE
     Route: 048
  81. HYDROXYCHLOROQUINE SULFATE [Concomitant]
     Active Substance: HYDROXYCHLOROQUINE SULFATE
     Route: 048
  82. HYDROXYCHLOROQUINE SULFATE [Concomitant]
     Active Substance: HYDROXYCHLOROQUINE SULFATE
     Route: 066
  83. HYDROXYCHLOROQUINE SULFATE [Concomitant]
     Active Substance: HYDROXYCHLOROQUINE SULFATE
  84. HYDROXYCHLOROQUINE SULFATE [Concomitant]
     Active Substance: HYDROXYCHLOROQUINE SULFATE
  85. HYDROXYCHLOROQUINE SULFATE [Concomitant]
     Active Substance: HYDROXYCHLOROQUINE SULFATE
     Route: 016
  86. HYDROXYCHLOROQUINE SULFATE [Concomitant]
     Active Substance: HYDROXYCHLOROQUINE SULFATE
     Route: 048
  87. PREDNISONE [Concomitant]
     Active Substance: PREDNISONE
     Indication: Rheumatoid arthritis
  88. PREDNISONE [Concomitant]
     Active Substance: PREDNISONE
     Indication: Systemic lupus erythematosus
     Route: 048
  89. PREDNISONE [Concomitant]
     Active Substance: PREDNISONE
     Indication: Synovitis
     Route: 048
  90. PREDNISONE [Concomitant]
     Active Substance: PREDNISONE
     Indication: Psoriatic arthropathy
  91. PREDNISONE [Concomitant]
     Active Substance: PREDNISONE
     Indication: Pemphigus
  92. PREDNISONE [Concomitant]
     Active Substance: PREDNISONE
     Indication: Inflammation
  93. PREDNISONE [Concomitant]
     Active Substance: PREDNISONE
     Indication: Bursitis
  94. METHOTREXATE [Concomitant]
     Active Substance: METHOTREXATE
     Indication: Rheumatoid arthritis
  95. METHOTREXATE [Concomitant]
     Active Substance: METHOTREXATE
     Route: 048
  96. METHOTREXATE [Concomitant]
     Active Substance: METHOTREXATE
     Route: 048
  97. METHOTREXATE [Concomitant]
     Active Substance: METHOTREXATE
     Route: 048
  98. METHOTREXATE [Concomitant]
     Active Substance: METHOTREXATE
     Route: 048
  99. METHOTREXATE [Concomitant]
     Active Substance: METHOTREXATE
     Route: 013
  100. METHOTREXATE [Concomitant]
     Active Substance: METHOTREXATE
  101. METHOTREXATE [Concomitant]
     Active Substance: METHOTREXATE
     Route: 058
  102. METHOTREXATE [Concomitant]
     Active Substance: METHOTREXATE
     Route: 048
  103. METHOTREXATE [Concomitant]
     Active Substance: METHOTREXATE
     Route: 048
  104. METHOTREXATE [Concomitant]
     Active Substance: METHOTREXATE
     Route: 058
  105. METHOTREXATE [Concomitant]
     Active Substance: METHOTREXATE
  106. METHOTREXATE [Concomitant]
     Active Substance: METHOTREXATE
     Route: 048
  107. METHOTREXATE [Concomitant]
     Active Substance: METHOTREXATE
     Route: 016
  108. METHOTREXATE [Concomitant]
     Active Substance: METHOTREXATE
  109. METHOTREXATE [Concomitant]
     Active Substance: METHOTREXATE
     Route: 013
  110. METHOTREXATE [Concomitant]
     Active Substance: METHOTREXATE
     Route: 048
  111. METHOTREXATE [Concomitant]
     Active Substance: METHOTREXATE
     Route: 048
  112. PREDNISONE [Concomitant]
     Active Substance: PREDNISONE
     Indication: Rheumatoid arthritis
  113. PREDNISONE [Concomitant]
     Active Substance: PREDNISONE
     Indication: Systemic lupus erythematosus
  114. PREDNISONE [Concomitant]
     Active Substance: PREDNISONE
     Indication: Synovitis
     Route: 042
  115. PREDNISONE [Concomitant]
     Active Substance: PREDNISONE
     Indication: Psoriatic arthropathy
     Route: 048
  116. PREDNISONE [Concomitant]
     Active Substance: PREDNISONE
     Indication: Pemphigus
  117. PREDNISONE [Concomitant]
     Active Substance: PREDNISONE
     Indication: Condition aggravated
  118. PREDNISONE [Concomitant]
     Active Substance: PREDNISONE
     Route: 016
  119. PREDNISONE [Concomitant]
     Active Substance: PREDNISONE
     Route: 048
  120. PREDNISONE [Concomitant]
     Active Substance: PREDNISONE
     Route: 058
  121. PREDNISONE [Concomitant]
     Active Substance: PREDNISONE
     Route: 048
  122. ASCORBIC ACID [Concomitant]
     Active Substance: ASCORBIC ACID
     Indication: Product used for unknown indication
  123. CETIRIZINE HYDROCHLORIDE [Concomitant]
     Active Substance: CETIRIZINE HYDROCHLORIDE
     Indication: Product used for unknown indication
  124. CETIRIZINE HYDROCHLORIDE [Concomitant]
     Active Substance: CETIRIZINE HYDROCHLORIDE
     Indication: Rheumatoid arthritis
  125. CETIRIZINE HYDROCHLORIDE [Concomitant]
     Active Substance: CETIRIZINE HYDROCHLORIDE
     Route: 042
  126. CETIRIZINE HYDROCHLORIDE [Concomitant]
     Active Substance: CETIRIZINE HYDROCHLORIDE
  127. CETIRIZINE HYDROCHLORIDE [Concomitant]
     Active Substance: CETIRIZINE HYDROCHLORIDE
     Route: 048
  128. ACETAMINOPHEN [Concomitant]
     Active Substance: ACETAMINOPHEN
     Indication: Product used for unknown indication
  129. REMICADE [Concomitant]
     Active Substance: INFLIXIMAB
     Indication: Rheumatoid arthritis
     Dosage: DOSAGE FORM: POWDER FOR SOLUTION INTRAVENOUS
     Route: 042
  130. REMICADE [Concomitant]
     Active Substance: INFLIXIMAB
     Indication: Colitis ulcerative
     Dosage: POWDER FOR SOLUTION INTRAVENOUS
     Route: 042
  131. REMICADE [Concomitant]
     Active Substance: INFLIXIMAB
     Dosage: POWDER FOR SOLUTION INTRAVENOUS
     Route: 058
  132. REMICADE [Concomitant]
     Active Substance: INFLIXIMAB
     Dosage: POWDER FOR SOLUTION INTRAVENOUS
     Route: 042
  133. REMICADE [Concomitant]
     Active Substance: INFLIXIMAB
     Dosage: POWDER FOR SOLUTION INTRAVENOUS
     Route: 042
  134. REMICADE [Concomitant]
     Active Substance: INFLIXIMAB
     Dosage: POWDER FOR SOLUTION INTRAVENOUS
  135. ACETAMINOPHEN\CAFFEINE\CODEINE PHOSPHATE [Concomitant]
     Active Substance: ACETAMINOPHEN\CAFFEINE\CODEINE PHOSPHATE
     Indication: Product used for unknown indication
  136. RITUXIMAB [Concomitant]
     Active Substance: RITUXIMAB
     Indication: Rheumatoid arthritis
     Route: 041
  137. RITUXIMAB [Concomitant]
     Active Substance: RITUXIMAB
     Route: 016
  138. RITUXIMAB [Concomitant]
     Active Substance: RITUXIMAB
     Route: 058
  139. RITUXIMAB [Concomitant]
     Active Substance: RITUXIMAB
  140. RITUXIMAB [Concomitant]
     Active Substance: RITUXIMAB
     Route: 042
  141. RITUXIMAB [Concomitant]
     Active Substance: RITUXIMAB
     Route: 042
  142. ATIVAN [Concomitant]
     Active Substance: LORAZEPAM
     Indication: Product used for unknown indication
  143. SIMPONI [Concomitant]
     Active Substance: GOLIMUMAB
     Indication: Rheumatoid arthritis
     Route: 058
  144. SIMPONI [Concomitant]
     Active Substance: GOLIMUMAB
     Dosage: SOLUTION SUBCUTANEOUS
     Route: 058
  145. SIMPONI [Concomitant]
     Active Substance: GOLIMUMAB
     Dosage: SOLUTION SUBCUTANEOUS
     Route: 048
  146. SIMPONI [Concomitant]
     Active Substance: GOLIMUMAB
     Dosage: SOLUTION SUBCUTANEOUS
     Route: 042
  147. SIMPONI [Concomitant]
     Active Substance: GOLIMUMAB
     Dosage: SOLUTION SUBCUTANEOUS
     Route: 058
  148. CAFFEINE [Concomitant]
     Active Substance: CAFFEINE
     Indication: Product used for unknown indication
  149. SULFASALAZINE [Concomitant]
     Active Substance: SULFASALAZINE
     Indication: Rheumatoid arthritis
  150. SULFASALAZINE [Concomitant]
     Active Substance: SULFASALAZINE
     Route: 048
  151. SULFASALAZINE [Concomitant]
     Active Substance: SULFASALAZINE
     Route: 048
  152. SULFASALAZINE [Concomitant]
     Active Substance: SULFASALAZINE
     Route: 058
  153. SULFASALAZINE [Concomitant]
     Active Substance: SULFASALAZINE
  154. SULFASALAZINE [Concomitant]
     Active Substance: SULFASALAZINE
     Route: 048
  155. SULFASALAZINE [Concomitant]
     Active Substance: SULFASALAZINE
  156. SULFASALAZINE [Concomitant]
     Active Substance: SULFASALAZINE
  157. SULFASALAZINE [Concomitant]
     Active Substance: SULFASALAZINE
     Route: 048
  158. SULFASALAZINE [Concomitant]
     Active Substance: SULFASALAZINE
  159. SULFASALAZINE [Concomitant]
     Active Substance: SULFASALAZINE
  160. CAFFEINE CITRATE [Concomitant]
     Active Substance: CAFFEINE CITRATE
     Indication: Product used for unknown indication
  161. CALCIUM [Concomitant]
     Active Substance: CALCIUM
     Indication: Product used for unknown indication
  162. CALCIUM CARBONATE [Concomitant]
     Active Substance: CALCIUM CARBONATE
     Indication: Product used for unknown indication
  163. CALCIUM GLUBIONATE [Concomitant]
     Active Substance: CALCIUM GLUBIONATE
     Indication: Product used for unknown indication
  164. CALCIUM GLUBIONATE [Concomitant]
     Active Substance: CALCIUM GLUBIONATE
     Route: 016
  165. CELEBREX [Concomitant]
     Active Substance: CELECOXIB
     Indication: Rheumatoid arthritis
     Route: 048
  166. CELEBREX [Concomitant]
     Active Substance: CELECOXIB
  167. CELECOXIB [Concomitant]
     Active Substance: CELECOXIB
     Indication: Product used for unknown indication
  168. CETIRIZINE [Concomitant]
     Active Substance: CETIRIZINE HYDROCHLORIDE
     Indication: Rheumatoid arthritis
  169. CETIRIZINE [Concomitant]
     Active Substance: CETIRIZINE HYDROCHLORIDE
  170. CETIRIZINE [Concomitant]
     Active Substance: CETIRIZINE HYDROCHLORIDE
  171. CETIRIZINE [Concomitant]
     Active Substance: CETIRIZINE HYDROCHLORIDE
     Route: 048
  172. CETIRIZINE [Concomitant]
     Active Substance: CETIRIZINE HYDROCHLORIDE
     Route: 048
  173. CETIRIZINE [Concomitant]
     Active Substance: CETIRIZINE HYDROCHLORIDE
  174. CETRIMIDE [Concomitant]
     Active Substance: CETRIMIDE
     Indication: Product used for unknown indication
  175. CHLORAPREP [Concomitant]
     Active Substance: CHLORHEXIDINE GLUCONATE\ISOPROPYL ALCOHOL
     Indication: Product used for unknown indication
     Route: 048
  176. CHLORHEXIDINE [Concomitant]
     Active Substance: CHLORHEXIDINE\CHLORHEXIDINE GLUCONATE
     Indication: Product used for unknown indication
  177. CHOLECALCIFEROL [Concomitant]
     Active Substance: CHOLECALCIFEROL
     Indication: Product used for unknown indication
  178. CODEINE [Concomitant]
     Active Substance: CODEINE
     Indication: Product used for unknown indication
  179. CORTISONE [Concomitant]
     Active Substance: CORTISONE
     Indication: Rheumatoid arthritis
     Route: 058
  180. CORTISONE [Concomitant]
     Active Substance: CORTISONE
  181. CORTISONE [Concomitant]
     Active Substance: CORTISONE
  182. CORTISONE [Concomitant]
     Active Substance: CORTISONE
  183. CORTISONE [Concomitant]
     Active Substance: CORTISONE
     Route: 048
  184. CORTISONE [Concomitant]
     Active Substance: CORTISONE
  185. CORTISONE ACETATE [Concomitant]
     Active Substance: CORTISONE ACETATE
     Indication: Rheumatoid arthritis
  186. CORTISONE ACETATE [Concomitant]
     Active Substance: CORTISONE ACETATE
     Route: 048
  187. COSENTYX [Concomitant]
     Active Substance: SECUKINUMAB
     Indication: Psoriatic arthropathy
     Route: 005
  188. COSENTYX [Concomitant]
     Active Substance: SECUKINUMAB
     Indication: Rheumatoid arthritis
  189. DESOGESTREL AND ETHINYL ESTRADIOL [Concomitant]
     Active Substance: DESOGESTREL\ETHINYL ESTRADIOL
     Indication: Product used for unknown indication
  190. DESOXIMETASONE [Concomitant]
     Active Substance: DESOXIMETASONE
     Indication: Rheumatoid arthritis
     Route: 003
  191. DESOXIMETASONE [Concomitant]
     Active Substance: DESOXIMETASONE
  192. DESOXIMETASONE [Concomitant]
     Active Substance: DESOXIMETASONE
  193. DESOXIMETASONE [Concomitant]
     Active Substance: DESOXIMETASONE
     Route: 003
  194. DESOXIMETASONE [Concomitant]
     Active Substance: DESOXIMETASONE
  195. DESOXIMETASONE [Concomitant]
     Active Substance: DESOXIMETASONE
     Route: 058
  196. DESOXIMETASONE [Concomitant]
     Active Substance: DESOXIMETASONE
     Route: 048
  197. DESOXIMETASONE [Concomitant]
     Active Substance: DESOXIMETASONE
     Route: 016
  198. DICLOFENAC [Concomitant]
     Active Substance: DICLOFENAC
     Indication: Product used for unknown indication
  199. DICLOFENAC [Concomitant]
     Active Substance: DICLOFENAC
  200. DICLOFENAC POTASSIUM [Concomitant]
     Active Substance: DICLOFENAC POTASSIUM
     Indication: Product used for unknown indication
  201. DICLOFENAC SODIUM [Concomitant]
     Active Substance: DICLOFENAC\DICLOFENAC SODIUM
     Indication: Rheumatoid arthritis
  202. DICLOFENAC SODIUM [Concomitant]
     Active Substance: DICLOFENAC\DICLOFENAC SODIUM
     Indication: Osteoarthritis
  203. DICLOFENAC SODIUM [Concomitant]
     Active Substance: DICLOFENAC\DICLOFENAC SODIUM
     Indication: Inflammation
     Route: 058
  204. DOXYCYCLINE [Concomitant]
     Active Substance: DOXYCYCLINE
     Indication: Product used for unknown indication
  205. ERELZI [Concomitant]
     Active Substance: ETANERCEPT-SZZS
     Indication: Rheumatoid arthritis
     Route: 058
  206. ERGOCALCIFEROL [Concomitant]
     Active Substance: ERGOCALCIFEROL
     Indication: Product used for unknown indication
  207. ETANERCEPT [Concomitant]
     Active Substance: ETANERCEPT
     Indication: Rheumatoid arthritis
     Route: 058
  208. ETANERCEPT [Concomitant]
     Active Substance: ETANERCEPT
  209. ETANERCEPT [Concomitant]
     Active Substance: ETANERCEPT
     Route: 058
  210. GLUCOSAMINE [Concomitant]
     Active Substance: GLUCOSAMINE
     Indication: Product used for unknown indication
  211. HYDROCORTISONE [Concomitant]
     Active Substance: HYDROCORTISONE
     Indication: Rheumatoid arthritis
  212. HYDROCORTISONE [Concomitant]
     Active Substance: HYDROCORTISONE
     Route: 048
  213. HYDROCORTISONE [Concomitant]
     Active Substance: HYDROCORTISONE
     Route: 048
  214. HYDROCORTISONE [Concomitant]
     Active Substance: HYDROCORTISONE
  215. HYDROCORTISONE [Concomitant]
     Active Substance: HYDROCORTISONE
     Route: 058
  216. HYDROCORTISONE [Concomitant]
     Active Substance: HYDROCORTISONE
  217. IBUPROFEN [Concomitant]
     Active Substance: IBUPROFEN
     Indication: Product used for unknown indication
  218. INFLIXIMAB [Concomitant]
     Active Substance: INFLIXIMAB
     Indication: Rheumatoid arthritis
  219. INFLIXIMAB [Concomitant]
     Active Substance: INFLIXIMAB
     Indication: Psoriatic arthropathy
     Route: 042
  220. KEVZARA [Concomitant]
     Active Substance: SARILUMAB
     Indication: Rheumatoid arthritis
     Route: 016
  221. KEVZARA [Concomitant]
     Active Substance: SARILUMAB
  222. LANSOPRAZOLE [Concomitant]
     Active Substance: LANSOPRAZOLE
     Indication: Product used for unknown indication
     Dosage: CAPSULE, DELAYED RELEASE
  223. LEFLUNOMIDE [Concomitant]
     Active Substance: LEFLUNOMIDE
     Indication: Rheumatoid arthritis
  224. LEFLUNOMIDE [Concomitant]
     Active Substance: LEFLUNOMIDE
     Route: 048
  225. LEFLUNOMIDE [Concomitant]
     Active Substance: LEFLUNOMIDE
     Route: 048
  226. LEFLUNOMIDE [Concomitant]
     Active Substance: LEFLUNOMIDE
     Route: 058
  227. LEFLUNOMIDE [Concomitant]
     Active Substance: LEFLUNOMIDE
     Route: 048
  228. LEVOTHYROXINE SODIUM [Concomitant]
     Active Substance: LEVOTHYROXINE SODIUM
     Indication: Product used for unknown indication
  229. LISINOPRIL [Concomitant]
     Active Substance: LISINOPRIL
     Indication: Product used for unknown indication
  230. LISINOPRIL [Concomitant]
     Active Substance: LISINOPRIL
     Indication: Product used for unknown indication
  231. FLUMETHASONE PIVALATE [Concomitant]
     Active Substance: FLUMETHASONE PIVALATE
     Indication: Rheumatoid arthritis
     Dosage: LOCACORTEN .03%
  232. FLUMETHASONE PIVALATE [Concomitant]
     Active Substance: FLUMETHASONE PIVALATE
     Dosage: LOCACORTEN .03%
     Route: 058
  233. FLUMETHASONE PIVALATE [Concomitant]
     Active Substance: FLUMETHASONE PIVALATE
     Dosage: LOCACORTEN .03%
     Route: 003
  234. LORAZEPAM [Concomitant]
     Active Substance: LORAZEPAM
     Indication: Product used for unknown indication
  235. LYRICA [Concomitant]
     Active Substance: PREGABALIN
     Indication: Product used for unknown indication
  236. MAGNESIUM [Concomitant]
     Active Substance: MAGNESIUM
     Indication: Product used for unknown indication
  237. MELOXICAM [Concomitant]
     Active Substance: MELOXICAM
     Indication: Product used for unknown indication
  238. METHOTREXATE SODIUM [Concomitant]
     Active Substance: METHOTREXATE SODIUM
     Indication: Rheumatoid arthritis
     Route: 048
  239. MOXIFLOXACIN [Concomitant]
     Active Substance: MOXIFLOXACIN
     Indication: Product used for unknown indication
     Route: 058
  240. MYCOPHENOLATE MOFETIL [Concomitant]
     Active Substance: MYCOPHENOLATE MOFETIL
     Indication: Product used for unknown indication
  241. NAPROXEN [Concomitant]
     Active Substance: NAPROXEN
     Indication: Rheumatoid arthritis
  242. NAPROXEN [Concomitant]
     Active Substance: NAPROXEN
     Indication: Rheumatoid arthritis
  243. NAPROXEN SODIUM [Concomitant]
     Active Substance: NAPROXEN SODIUM
     Indication: Product used for unknown indication
     Route: 058
  244. OTEZLA [Concomitant]
     Active Substance: APREMILAST
     Indication: Product used for unknown indication
  245. OTEZLA [Concomitant]
     Active Substance: APREMILAST
     Route: 048
  246. OTEZLA [Concomitant]
     Active Substance: APREMILAST
     Route: 048
  247. OXYCODONE [Concomitant]
     Active Substance: OXYCODONE
     Indication: Product used for unknown indication
  248. OXYCODONE TEREPHTHALATE [Concomitant]
     Active Substance: OXYCODONE TEREPHTHALATE
     Indication: Product used for unknown indication
  249. OXYCODONE AND ACETAMINOPHEN [Concomitant]
     Active Substance: ACETAMINOPHEN\OXYCODONE HYDROCHLORIDE
     Indication: Product used for unknown indication
  250. PANTOPRAZOLE SODIUM [Concomitant]
     Active Substance: PANTOPRAZOLE SODIUM
     Indication: Product used for unknown indication
  251. PANTOPRAZOLE [Concomitant]
     Active Substance: PANTOPRAZOLE
     Indication: Product used for unknown indication
  252. PERIOGARD [Concomitant]
     Active Substance: CHLORHEXIDINE GLUCONATE
     Indication: Rheumatoid arthritis
     Route: 002
  253. PHTHALYLSULFATHIAZOLE [Concomitant]
     Active Substance: PHTHALYLSULFATHIAZOLE
     Indication: Rheumatoid arthritis
     Route: 016
  254. PHTHALYLSULFATHIAZOLE [Concomitant]
     Active Substance: PHTHALYLSULFATHIAZOLE
     Route: 048
  255. PHTHALYLSULFATHIAZOLE [Concomitant]
     Active Substance: PHTHALYLSULFATHIAZOLE
     Route: 058
  256. PHTHALYLSULFATHIAZOLE [Concomitant]
     Active Substance: PHTHALYLSULFATHIAZOLE
     Route: 048
  257. PHTHALYLSULFATHIAZOLE [Concomitant]
     Active Substance: PHTHALYLSULFATHIAZOLE
  258. PHTHALYLSULFATHIAZOLE [Concomitant]
     Active Substance: PHTHALYLSULFATHIAZOLE
     Route: 042
  259. PIROXICAM [Concomitant]
     Active Substance: PIROXICAM
     Indication: Product used for unknown indication
  260. HYDROXYCHLOROQUINE DIPHOSPHATE [Concomitant]
     Active Substance: HYDROXYCHLOROQUINE DIPHOSPHATE
     Indication: Systemic lupus erythematosus
     Route: 048
  261. HYDROXYCHLOROQUINE DIPHOSPHATE [Concomitant]
     Active Substance: HYDROXYCHLOROQUINE DIPHOSPHATE
     Indication: Rheumatoid arthritis
     Route: 005
  262. HYDROXYCHLOROQUINE DIPHOSPHATE [Concomitant]
     Active Substance: HYDROXYCHLOROQUINE DIPHOSPHATE
     Route: 048
  263. HYDROXYCHLOROQUINE DIPHOSPHATE [Concomitant]
     Active Substance: HYDROXYCHLOROQUINE DIPHOSPHATE
  264. HYDROXYCHLOROQUINE DIPHOSPHATE [Concomitant]
     Active Substance: HYDROXYCHLOROQUINE DIPHOSPHATE
  265. HYDROXYCHLOROQUINE DIPHOSPHATE [Concomitant]
     Active Substance: HYDROXYCHLOROQUINE DIPHOSPHATE
     Route: 048
  266. HYDROXYCHLOROQUINE DIPHOSPHATE [Concomitant]
     Active Substance: HYDROXYCHLOROQUINE DIPHOSPHATE
     Route: 066
  267. PREDNISOLONE [Concomitant]
     Active Substance: PREDNISOLONE
     Indication: Product used for unknown indication
  268. PREVACID [Concomitant]
     Active Substance: LANSOPRAZOLE
     Indication: Product used for unknown indication
  269. PSEUDOEPHEDRINE [Concomitant]
     Active Substance: PSEUDOEPHEDRINE
     Indication: Rheumatoid arthritis
  270. PSEUDOEPHEDRINE [Concomitant]
     Active Substance: PSEUDOEPHEDRINE
  271. PSEUDOEPHEDRINE [Concomitant]
     Active Substance: PSEUDOEPHEDRINE
  272. QUETIAPINE [Concomitant]
     Active Substance: QUETIAPINE
     Indication: Rheumatoid arthritis
     Route: 048
  273. QUETIAPINE [Concomitant]
     Active Substance: QUETIAPINE
  274. QUETIAPINE [Concomitant]
     Active Substance: QUETIAPINE
     Route: 003
  275. RAMIPRIL [Concomitant]
     Active Substance: RAMIPRIL
     Indication: Product used for unknown indication
     Route: 016
  276. RAMIPRIL [Concomitant]
     Active Substance: RAMIPRIL
  277. CETIRIZINE HYDROCHLORIDE\PSEUDOEPHEDRINE HYDROCHLORIDE [Concomitant]
     Active Substance: CETIRIZINE HYDROCHLORIDE\PSEUDOEPHEDRINE HYDROCHLORIDE
     Indication: Rheumatoid arthritis
     Dosage: TABLET (EXTENDED-RELEASE)
  278. CETIRIZINE HYDROCHLORIDE\PSEUDOEPHEDRINE HYDROCHLORIDE [Concomitant]
     Active Substance: CETIRIZINE HYDROCHLORIDE\PSEUDOEPHEDRINE HYDROCHLORIDE
     Dosage: TABLET (EXTENDED-RELEASE)
  279. CETIRIZINE HYDROCHLORIDE\PSEUDOEPHEDRINE HYDROCHLORIDE [Concomitant]
     Active Substance: CETIRIZINE HYDROCHLORIDE\PSEUDOEPHEDRINE HYDROCHLORIDE
     Dosage: TABLET (EXTENDED-RELEASE)
     Route: 048
  280. RISEDRONATE SODIUM [Concomitant]
     Active Substance: RISEDRONATE SODIUM
     Indication: Product used for unknown indication
  281. RITUXAN [Concomitant]
     Active Substance: RITUXIMAB
     Indication: Rheumatoid arthritis
     Dosage: SOLUTION INTRAVENOUS
     Route: 042
  282. SULFASALAZINE [Concomitant]
     Active Substance: SULFASALAZINE
     Indication: Rheumatoid arthritis
     Route: 048
  283. FISH OIL [Concomitant]
     Active Substance: FISH OIL
     Indication: Rheumatoid arthritis
  284. SARILUMAB [Concomitant]
     Active Substance: SARILUMAB
     Indication: Product used for unknown indication
  285. SOLU-MEDROL [Concomitant]
     Active Substance: METHYLPREDNISOLONE SODIUM SUCCINATE
     Indication: Product used for unknown indication
  286. STELARA [Concomitant]
     Active Substance: USTEKINUMAB
     Indication: Rheumatoid arthritis
     Dosage: SOLUTION SUBCUTANEOUS
     Route: 058
  287. STELARA [Concomitant]
     Active Substance: USTEKINUMAB
     Dosage: SOLUTION SUBCUTANEOUS
  288. STELARA [Concomitant]
     Active Substance: USTEKINUMAB
     Dosage: SOLUTION SUBCUTANEOUS
     Route: 042
  289. STELARA [Concomitant]
     Active Substance: USTEKINUMAB
     Dosage: SOLUTION SUBCUTANEOUS
     Route: 058
  290. SULFAMETHOXAZOLE [Concomitant]
     Active Substance: SULFAMETHOXAZOLE
     Indication: Product used for unknown indication
  291. SULFAMETHOXAZOLE AND TRIMETHOPRIM [Concomitant]
     Active Substance: SULFAMETHOXAZOLE\TRIMETHOPRIM
     Indication: Product used for unknown indication
  292. TOPICORT [Concomitant]
     Active Substance: DESOXIMETASONE
     Indication: Rheumatoid arthritis
  293. TOPICORT [Concomitant]
     Active Substance: DESOXIMETASONE
     Route: 058
  294. TOPICORT [Concomitant]
     Active Substance: DESOXIMETASONE
     Route: 003
  295. TYLENOL [Concomitant]
     Active Substance: ACETAMINOPHEN
     Indication: Product used for unknown indication
  296. TYLENOL WITH CODEINE [Concomitant]
     Active Substance: ACETAMINOPHEN\CODEINE PHOSPHATE
     Indication: Product used for unknown indication
  297. VITAMIN C [Concomitant]
     Active Substance: ASCORBIC ACID
     Indication: Product used for unknown indication
  298. VITAMIN D3 [Concomitant]
     Active Substance: CHOLECALCIFEROL
     Indication: Rheumatoid arthritis
  299. DICLOFENAC [Concomitant]
     Active Substance: DICLOFENAC
     Indication: Product used for unknown indication
  300. PREDNISONE [Concomitant]
     Active Substance: PREDNISONE
     Indication: Rheumatoid arthritis
     Route: 048
  301. PREDNISONE [Concomitant]
     Active Substance: PREDNISONE
  302. XELJANZ [Concomitant]
     Active Substance: TOFACITINIB CITRATE
     Indication: Rheumatoid arthritis
  303. XELJANZ [Concomitant]
     Active Substance: TOFACITINIB CITRATE
     Indication: Psoriatic arthropathy
     Route: 048
  304. XELJANZ [Concomitant]
     Active Substance: TOFACITINIB CITRATE
  305. XELJANZ [Concomitant]
     Active Substance: TOFACITINIB CITRATE
     Route: 048
  306. XELJANZ [Concomitant]
     Active Substance: TOFACITINIB CITRATE
     Route: 016
  307. XELJANZ [Concomitant]
     Active Substance: TOFACITINIB CITRATE
  308. XELJANZ [Concomitant]
     Active Substance: TOFACITINIB CITRATE
  309. XELJANZ [Concomitant]
     Active Substance: TOFACITINIB CITRATE
     Route: 048
  310. XELJANZ [Concomitant]
     Active Substance: TOFACITINIB CITRATE
     Route: 048
  311. XELJANZ [Concomitant]
     Active Substance: TOFACITINIB CITRATE
  312. XELJANZ [Concomitant]
     Active Substance: TOFACITINIB CITRATE
     Route: 042
  313. XELJANZ [Concomitant]
     Active Substance: TOFACITINIB CITRATE
     Route: 058
  314. XELJANZ [Concomitant]
     Active Substance: TOFACITINIB CITRATE
  315. ZESTRIL [Concomitant]
     Active Substance: LISINOPRIL
     Indication: Product used for unknown indication
  316. CODEINE PHOSPHATE [Concomitant]
     Active Substance: CODEINE PHOSPHATE
     Indication: Product used for unknown indication
  317. ETANERCEPT [Concomitant]
     Active Substance: ETANERCEPT
     Indication: Rheumatoid arthritis
     Route: 058
  318. HYDROCORTISONE BUTYRATE [Concomitant]
     Active Substance: HYDROCORTISONE BUTYRATE
     Indication: Rheumatoid arthritis
     Route: 048
  319. PANTOPRAZOLE SODIUM ANHYDROUS [Concomitant]
     Active Substance: PANTOPRAZOLE SODIUM ANHYDROUS
     Indication: Product used for unknown indication
     Route: 016
  320. HYALURONIDASE (HUMAN RECOMBINANT)\RITUXIMAB [Concomitant]
     Active Substance: HYALURONIDASE (HUMAN RECOMBINANT)\RITUXIMAB
     Indication: Rheumatoid arthritis
     Route: 058
  321. DIETARY SUPPLEMENT\HERBALS [Concomitant]
     Active Substance: DIETARY SUPPLEMENT\HERBALS
     Indication: Product used for unknown indication

REACTIONS (128)
  - Abdominal discomfort [Unknown]
  - Alopecia [Unknown]
  - Fatigue [Unknown]
  - Glossodynia [Not Recovered/Not Resolved]
  - Hand deformity [Not Recovered/Not Resolved]
  - Arthropathy [Not Recovered/Not Resolved]
  - Pain [Not Recovered/Not Resolved]
  - Pemphigus [Not Recovered/Not Resolved]
  - Swelling [Not Recovered/Not Resolved]
  - Systemic lupus erythematosus [Unknown]
  - Wound [Not Recovered/Not Resolved]
  - Adverse event [Unknown]
  - Autoimmune disorder [Unknown]
  - Breast cancer stage II [Unknown]
  - Deep vein thrombosis postoperative [Unknown]
  - Delirium [Unknown]
  - Dislocation of vertebra [Unknown]
  - Duodenal ulcer perforation [Unknown]
  - Liver injury [Unknown]
  - Lower limb fracture [Unknown]
  - Lupus vulgaris [Unknown]
  - Pericarditis [Unknown]
  - Psoriatic arthropathy [Unknown]
  - Rheumatic fever [Unknown]
  - Type 2 diabetes mellitus [Unknown]
  - Adjustment disorder with depressed mood [Unknown]
  - Amnesia [Unknown]
  - Anxiety [Unknown]
  - Asthenia [Unknown]
  - Asthma [Unknown]
  - Blood cholesterol increased [Unknown]
  - Condition aggravated [Unknown]
  - Confusional state [Unknown]
  - Contusion [Unknown]
  - Decreased appetite [Unknown]
  - Depression [Unknown]
  - Discomfort [Unknown]
  - Drug hypersensitivity [Unknown]
  - Drug ineffective [Unknown]
  - Drug intolerance [Unknown]
  - Dry mouth [Unknown]
  - Dyspepsia [Unknown]
  - Dyspnoea [Unknown]
  - Facet joint syndrome [Unknown]
  - Fibromyalgia [Unknown]
  - Folliculitis [Unknown]
  - Gait disturbance [Unknown]
  - Gait inability [Unknown]
  - Gastrointestinal disorder [Unknown]
  - General physical health deterioration [Unknown]
  - Grip strength decreased [Unknown]
  - Headache [Unknown]
  - Helicobacter infection [Unknown]
  - Hypertension [Unknown]
  - Hypoaesthesia [Unknown]
  - Ill-defined disorder [Unknown]
  - Impaired healing [Unknown]
  - Infection [Unknown]
  - Inflammation [Unknown]
  - Infusion related reaction [Unknown]
  - Injury [Unknown]
  - Intentional product misuse [Unknown]
  - Irritable bowel syndrome [Unknown]
  - Lip dry [Unknown]
  - Liver disorder [Unknown]
  - Loss of personal independence in daily activities [Unknown]
  - Lower respiratory tract infection [Unknown]
  - Lung disorder [Unknown]
  - Malaise [Unknown]
  - Medication error [Unknown]
  - Memory impairment [Unknown]
  - Migraine [Unknown]
  - Muscle injury [Unknown]
  - Muscle spasms [Unknown]
  - Muscular weakness [Unknown]
  - Nasopharyngitis [Unknown]
  - Night sweats [Unknown]
  - Obesity [Unknown]
  - Osteoarthritis [Unknown]
  - Paraesthesia [Unknown]
  - Peripheral venous disease [Unknown]
  - Product use issue [Unknown]
  - Pyrexia [Unknown]
  - Rheumatoid arthritis [Unknown]
  - Road traffic accident [Unknown]
  - Sciatica [Unknown]
  - Sinusitis [Unknown]
  - Sleep disorder [Unknown]
  - Sleep disorder due to general medical condition, insomnia type [Unknown]
  - Stomatitis [Unknown]
  - Swollen joint count increased [Unknown]
  - Urticaria [Unknown]
  - Weight decreased [Unknown]
  - Weight increased [Unknown]
  - Wound infection [Unknown]
  - X-ray abnormal [Unknown]
  - Abdominal pain upper [Unknown]
  - Anti-cyclic citrullinated peptide antibody positive [Unknown]
  - Arthralgia [Unknown]
  - Blister [Unknown]
  - C-reactive protein [Unknown]
  - C-reactive protein abnormal [Unknown]
  - Chest pain [Unknown]
  - Diarrhoea [Unknown]
  - Hepatic enzyme increased [Unknown]
  - Joint swelling [Unknown]
  - Mobility decreased [Unknown]
  - Musculoskeletal pain [Unknown]
  - Musculoskeletal stiffness [Unknown]
  - Oedema [Unknown]
  - Peripheral swelling [Unknown]
  - Intentional product use issue [Unknown]
  - Pruritus [Unknown]
  - Rash [Unknown]
  - Rheumatoid factor positive [Unknown]
  - Road traffic accident [Unknown]
  - Synovitis [Unknown]
  - Vomiting [Unknown]
  - Wheezing [Unknown]
  - Prescribed underdose [Unknown]
  - Hospitalisation [Unknown]
  - Therapeutic product effect decreased [Unknown]
  - Therapy non-responder [Unknown]
  - Treatment failure [Unknown]
  - Hypersensitivity [Unknown]
  - Bursitis [Unknown]
  - Dizziness [Unknown]
  - Joint range of motion decreased [Unknown]
